FAERS Safety Report 5922739-9 (Version None)
Quarter: 2008Q4

REPORT INFORMATION
  Report Type: 
  Country: None (occurrence: None)
  Receive Date: 20081017
  Receipt Date: 20081014
  Transmission Date: 20090506
  Serious: Yes (Death)
  Sender: FDA-Public Use
  Company Number: US-CELGENEUS-163-21880-08100979

PATIENT
  Sex: Female

DRUGS (3)
  1. REVLIMID [Suspect]
     Indication: MULTIPLE MYELOMA
     Route: 048
     Dates: start: 20080212, end: 20080401
  2. REVLIMID [Suspect]
     Route: 048
     Dates: start: 20080115, end: 20080201
  3. REVLIMID [Suspect]
     Dosage: 25-15MG
     Route: 048
     Dates: start: 20070523, end: 20080101

REACTIONS (1)
  - DISEASE PROGRESSION [None]
